FAERS Safety Report 8357499-8 (Version None)
Quarter: 2012Q2

REPORT INFORMATION
  Report Type: 
  Country: None (occurrence: None)
  Receive Date: 20120514
  Receipt Date: 20120504
  Transmission Date: 20120825
  Serious: Yes (Hospitalization)
  Sender: FDA-Public Use
  Company Number: US-VERTEX PHARMACEUTICALS INC.-AE-2012-006614

PATIENT
  Sex: Female

DRUGS (3)
  1. RIBAVIRIN [Concomitant]
     Indication: HEPATITIS C
     Route: 048
     Dates: start: 20111108, end: 20120501
  2. INCIVEK [Suspect]
     Indication: HEPATITIS C
     Route: 048
     Dates: start: 20120113, end: 20120406
  3. PEGASYS [Concomitant]
     Indication: HEPATITIS C
     Dates: start: 20111108, end: 20120501

REACTIONS (3)
  - CARDIAC DISORDER [None]
  - ANAEMIA [None]
  - HEART RATE INCREASED [None]
